FAERS Safety Report 10984563 (Version 2)
Quarter: 2015Q2

REPORT INFORMATION
  Report Type: Spontaneous
  Country: US (occurrence: US)
  Receive Date: 20150403
  Receipt Date: 20150525
  Transmission Date: 20150821
  Serious: No
  Sender: FDA-Public Use
  Company Number: US-JNJFOC-20140202247

PATIENT
  Age: 65 Year
  Sex: Female
  Weight: 54.43 kg

DRUGS (4)
  1. IMODIUM A-D [Suspect]
     Active Substance: LOPERAMIDE HYDROCHLORIDE
     Route: 048
  2. PREDNISONE. [Concomitant]
     Active Substance: PREDNISONE
     Indication: COLITIS ULCERATIVE
     Route: 065
  3. MESALAMINE ENEMA [Concomitant]
     Indication: COLITIS ULCERATIVE
     Dosage: DAILY
     Route: 065
  4. IMODIUM A-D [Suspect]
     Active Substance: LOPERAMIDE HYDROCHLORIDE
     Indication: COLITIS ULCERATIVE
     Dosage: 1 OR 2 DAILY
     Route: 048

REACTIONS (3)
  - Product use issue [Unknown]
  - Dry throat [Not Recovered/Not Resolved]
  - Dehydration [Unknown]
